FAERS Safety Report 6405938-1 (Version None)
Quarter: 2009Q4

REPORT INFORMATION
  Report Type: 
  Country: None (occurrence: None)
  Receive Date: 20091016
  Receipt Date: 20091016
  Transmission Date: 20100525
  Serious: Yes (Death)
  Sender: FDA-Public Use
  Company Number: None

PATIENT
  Sex: Female
  Weight: 61.4 kg

DRUGS (2)
  1. BUPROPION HYDROCHLORIDE [Suspect]
     Indication: DEPRESSION
     Dosage: 150MG 1XDAILY
     Dates: start: 20090107, end: 20090206
  2. WELLBUTRIN [Concomitant]

REACTIONS (2)
  - COMPLETED SUICIDE [None]
  - PRODUCT SUBSTITUTION ISSUE [None]
